FAERS Safety Report 9383042 (Version 4)
Quarter: 2013Q3

REPORT INFORMATION
  Report Type: Spontaneous
  Country: IT (occurrence: IT)
  Receive Date: 20130704
  Receipt Date: 20130729
  Transmission Date: 20140515
  Serious: Yes (Hospitalization, Other)
  Sender: FDA-Public Use
  Company Number: IT-ROCHE-1240981

PATIENT
  Age: 73 Year
  Sex: Male

DRUGS (2)
  1. LUCENTIS [Suspect]
     Indication: AGE-RELATED MACULAR DEGENERATION
     Route: 050
     Dates: start: 20130510
  2. LUCENTIS [Suspect]
     Route: 065
     Dates: start: 20130613

REACTIONS (4)
  - Endophthalmitis [Unknown]
  - Vitreous disorder [Unknown]
  - Retinal detachment [Unknown]
  - Eye pain [Recovering/Resolving]
